FAERS Safety Report 7428552-8 (Version None)
Quarter: 2011Q2

REPORT INFORMATION
  Report Type: 
  Country: None (occurrence: None)
  Receive Date: 20110421
  Receipt Date: 20090613
  Transmission Date: 20111010
  Serious: Yes (Death, Hospitalization)
  Sender: FDA-Public Use
  Company Number: US-BAYER-200923475NA

PATIENT
  Age: 51 Year
  Sex: Female
  Weight: 90.703 kg

DRUGS (9)
  1. PROTONIX [Concomitant]
     Dosage: 40 MG, QD
     Route: 048
  2. VANCOMYCIN [Concomitant]
     Dosage: UNK
     Dates: start: 20070727
  3. LOPRESSOR [Concomitant]
     Indication: HYPERTENSION
     Dosage: 100 MG, TID
     Route: 048
  4. ANCEF [Concomitant]
     Dosage: 2 G, UNK
     Route: 042
     Dates: start: 20070724, end: 20070724
  5. PROTAMINE SULFATE [Concomitant]
     Dosage: 500 MG, UNK
     Route: 042
     Dates: start: 20070724
  6. PLATELETS [Concomitant]
     Dosage: PLATELETS 139,000 PRIOR TO SURGERY, 86,000 POSTOPERATIVELY
     Dates: start: 20070724
  7. TRASYLOL [Suspect]
     Indication: MITRAL VALVE REPAIR
     Dosage: 200ML LOADING DOSE FOLLOWED BY 50 ML / HOUR DRIP
     Route: 042
     Dates: start: 20070724, end: 20070724
  8. BENICAR [Concomitant]
     Indication: HYPERTENSION
     Dosage: 20 MG, QD
     Route: 048
  9. PACKED RED BLOOD CELLS [Concomitant]
     Dosage: 2 UNITS
     Dates: start: 20070724

REACTIONS (5)
  - DEATH [None]
  - EMOTIONAL DISTRESS [None]
  - INJURY [None]
  - ANXIETY [None]
  - RENAL FAILURE [None]
